FAERS Safety Report 8571707-X (Version None)
Quarter: 2012Q3

REPORT INFORMATION
  Report Type: 
  Country: None (occurrence: None)
  Receive Date: 20120806
  Receipt Date: 20120801
  Transmission Date: 20120928
  Serious: Yes (Hospitalization, Other)
  Sender: FDA-Public Use
  Company Number: PHEH2008US03330

PATIENT
  Sex: Female

DRUGS (30)
  1. RADIATION TREATMENT [Concomitant]
  2. MS CONTIN [Concomitant]
  3. SKELAXIN [Concomitant]
  4. LORTAB [Concomitant]
  5. PERCOCET [Concomitant]
  6. IBUPROFEN (ADVIL) [Concomitant]
  7. ZOMETA [Suspect]
     Dosage: 4 MG, UNK
     Route: 042
     Dates: start: 20010101, end: 20060301
  8. SEROQUEL [Concomitant]
  9. XANAX [Concomitant]
  10. LIDOCAINE [Concomitant]
  11. CYMBALTA [Concomitant]
  12. HERCEPTIN [Suspect]
  13. ZOLOFT [Concomitant]
  14. ATIVAN [Concomitant]
  15. VENLAFAXINE [Concomitant]
  16. CIPRO [Concomitant]
     Dosage: 500 MG, BID
  17. HYDROCODONE BITARTRATE [Concomitant]
  18. UNASYN [Concomitant]
  19. BACTRIM [Concomitant]
  20. TORADOL [Concomitant]
  21. WELLBUTRIN [Concomitant]
  22. ADRIAMYCIN PFS [Concomitant]
  23. CHEMOTHERAPEUTICS NOS [Concomitant]
  24. HERCEPTIN [Concomitant]
  25. ALPRAZOLAM [Concomitant]
  26. PENICILLIN [Concomitant]
  27. MORPHINE SULFATE [Concomitant]
  28. CHLORHEXIDINE GLUCONATE [Concomitant]
  29. PROMETHAZINE [Concomitant]
  30. FIORICET [Concomitant]

REACTIONS (69)
  - MIGRAINE WITH AURA [None]
  - EJECTION FRACTION DECREASED [None]
  - EAR PAIN [None]
  - CELLULITIS [None]
  - VITAMIN D DEFICIENCY [None]
  - OSTEOPOROSIS [None]
  - VENTRICULAR DYSFUNCTION [None]
  - OSTEONECROSIS [None]
  - OSTEONECROSIS OF JAW [None]
  - PAIN IN JAW [None]
  - TOOTH LOSS [None]
  - PAIN IN EXTREMITY [None]
  - RED BLOOD CELL SEDIMENTATION RATE INCREASED [None]
  - DYSPNOEA [None]
  - PERIODONTITIS [None]
  - DENTAL CARIES [None]
  - INFLAMMATION [None]
  - GENERALISED ANXIETY DISORDER [None]
  - TOOTHACHE [None]
  - PERIODONTAL DISEASE [None]
  - RHINITIS ALLERGIC [None]
  - JAW DISORDER [None]
  - ARTHRALGIA [None]
  - SOFT TISSUE DISORDER [None]
  - HYPOTENSION [None]
  - OSTEOMYELITIS [None]
  - OSTEOARTHRITIS [None]
  - CARDIOMYOPATHY [None]
  - PNEUMONIA [None]
  - ANXIETY [None]
  - OSTEITIS [None]
  - LOOSE TOOTH [None]
  - BOWEL MOVEMENT IRREGULARITY [None]
  - NERVOUSNESS [None]
  - MICTURITION URGENCY [None]
  - GINGIVITIS [None]
  - DEPRESSION [None]
  - BRONCHITIS [None]
  - RIB FRACTURE [None]
  - LUNG INFILTRATION [None]
  - GENERAL PHYSICAL HEALTH DETERIORATION [None]
  - OTITIS MEDIA [None]
  - OSTEOLYSIS [None]
  - SUPERIOR VENA CAVA SYNDROME [None]
  - BLOOD UREA NITROGEN/CREATININE RATIO INCREASED [None]
  - URINARY TRACT INFECTION [None]
  - CHRONIC OBSTRUCTIVE PULMONARY DISEASE [None]
  - ANGIOPATHY [None]
  - SUPERINFECTION [None]
  - NEOPLASM PROGRESSION [None]
  - MUSCULOSKELETAL PAIN [None]
  - HYPOKINESIA [None]
  - BACK PAIN [None]
  - SPINAL OSTEOARTHRITIS [None]
  - INFECTION [None]
  - BONE DISORDER [None]
  - NEOPLASM MALIGNANT [None]
  - HEADACHE [None]
  - COUGH [None]
  - MOUTH ULCERATION [None]
  - CHRONIC FATIGUE SYNDROME [None]
  - TYMPANIC MEMBRANE DISORDER [None]
  - PURULENT DISCHARGE [None]
  - PAIN [None]
  - POSITRON EMISSION TOMOGRAM ABNORMAL [None]
  - ATTENTION DEFICIT/HYPERACTIVITY DISORDER [None]
  - FALL [None]
  - ATELECTASIS [None]
  - BLOOD GLUCOSE INCREASED [None]
